FAERS Safety Report 5854880-3 (Version None)
Quarter: 2008Q3

REPORT INFORMATION
  Report Type: 
  Country: None (occurrence: None)
  Receive Date: 20080822
  Receipt Date: 20080226
  Transmission Date: 20090109
  Serious: No
  Sender: FDA-Public Use
  Company Number: US-ABBOTT-08P-163-0440196-00

PATIENT
  Sex: Male
  Weight: 95.34 kg

DRUGS (5)
  1. SYNTHROID [Suspect]
     Indication: BLOOD THYROID STIMULATING HORMONE DECREASED
     Route: 048
     Dates: start: 20071201, end: 20080220
  2. ROSUVASTATIN [Concomitant]
     Indication: DRUG USE FOR UNKNOWN INDICATION
  3. ZOLPIDEM TARTRATE [Concomitant]
     Indication: DRUG USE FOR UNKNOWN INDICATION
  4. GLUCOSAMINE [Concomitant]
     Indication: DRUG USE FOR UNKNOWN INDICATION
  5. MULTI-VITAMIN [Concomitant]
     Indication: DRUG USE FOR UNKNOWN INDICATION

REACTIONS (2)
  - PRURITUS [None]
  - RASH GENERALISED [None]
